FAERS Safety Report 23580180 (Version 1)
Quarter: 2024Q1

REPORT INFORMATION
  Report Type: Spontaneous
  Country: IT (occurrence: IT)
  Receive Date: 20240229
  Receipt Date: 20240229
  Transmission Date: 20240409
  Serious: Yes (Other)
  Sender: FDA-Public Use
  Company Number: IT-Eisai-EC-2024-160098

PATIENT
  Age: 53 Year
  Sex: Female

DRUGS (4)
  1. LENVATINIB [Suspect]
     Active Substance: LENVATINIB
     Indication: Endometrial adenocarcinoma
     Route: 048
     Dates: start: 20230606, end: 202308
  2. LENVATINIB [Suspect]
     Active Substance: LENVATINIB
     Dosage: TREATMENT RESTARTED (4TH CYCLE) UNTIL DISCONTINUED
     Route: 048
     Dates: start: 20231011
  3. PEMBROLIZUMAB [Suspect]
     Active Substance: PEMBROLIZUMAB
     Indication: Endometrial cancer stage IV
     Dosage: 2ND CYCLE...WITHDRAWN AUG/2/2023
     Dates: start: 20230606, end: 20230711
  4. PEMBROLIZUMAB [Suspect]
     Active Substance: PEMBROLIZUMAB
     Dosage: TREATMENT RESTARTED (4TH CYCLE) UNTIL DISCONTINUED
     Dates: start: 20231011

REACTIONS (5)
  - Immune-mediated lung disease [Recovered/Resolved]
  - Malignant neoplasm progression [Unknown]
  - Dyspnoea exertional [Not Recovered/Not Resolved]
  - Cough [Recovered/Resolved]
  - Cough [Not Recovered/Not Resolved]

NARRATIVE: CASE EVENT DATE: 20230801
